FAERS Safety Report 12822565 (Version 2)
Quarter: 2017Q2

REPORT INFORMATION
  Report Type: Spontaneous
  Country: US (occurrence: US)
  Receive Date: 20161006
  Receipt Date: 20170417
  Transmission Date: 20170830
  Serious: No
  Sender: FDA-Public Use
  Company Number: US-SHIONOGI, INC-2016000841

PATIENT
  Age: 67 Year
  Sex: Female
  Weight: 68.27 kg

DRUGS (7)
  1. CARTIA XT [Concomitant]
     Active Substance: DILTIAZEM HYDROCHLORIDE
     Indication: ANGINA PECTORIS
     Dosage: 120 MG, QD
     Route: 065
  2. ZONISAMIDE. [Concomitant]
     Active Substance: ZONISAMIDE
     Indication: MIGRAINE
     Dosage: 50 MG, QD
     Route: 065
  3. RIZATRIPTAN. [Concomitant]
     Active Substance: RIZATRIPTAN
     Indication: MIGRAINE
     Dosage: 10 MG, QD
     Route: 065
  4. AMITRIPTYLINE [Concomitant]
     Active Substance: AMITRIPTYLINE
     Indication: ANTIDEPRESSANT THERAPY
     Dosage: 25 MG, QD
     Route: 065
  5. ESTRADIOL. [Concomitant]
     Active Substance: ESTRADIOL
     Indication: MENOPAUSAL SYMPTOMS
     Dosage: 1 MG, QD
     Route: 065
  6. OSPHENA [Suspect]
     Active Substance: OSPEMIFENE
     Indication: OFF LABEL USE
  7. OSPHENA [Suspect]
     Active Substance: OSPEMIFENE
     Indication: ATROPHIC VULVOVAGINITIS
     Dosage: 60 MG, QD
     Route: 048
     Dates: start: 20160822, end: 20160825

REACTIONS (4)
  - Off label use [Unknown]
  - Labelled drug-drug interaction medication error [Unknown]
  - Gastrointestinal pain [Recovered/Resolved]
  - Hypersensitivity [Unknown]

NARRATIVE: CASE EVENT DATE: 20160822
